FAERS Safety Report 16020463 (Version 3)
Quarter: 2019Q2

REPORT INFORMATION
  Report Type: Report from Study
  Country: None (occurrence: US)
  Receive Date: 20190301
  Receipt Date: 20190411
  Transmission Date: 20190711
  Serious: Yes (Other)
  Sender: FDA-Public Use
  Company Number: US-ABBVIE-18K-163-2586527-00

PATIENT
  Age: 56 Year
  Sex: Female

DRUGS (1)
  1. HUMIRA [Suspect]
     Active Substance: ADALIMUMAB
     Indication: RHEUMATOID ARTHRITIS
     Route: 058

REACTIONS (8)
  - Musculoskeletal pain [Unknown]
  - Uterine polyp [Unknown]
  - Uterine haemorrhage [Unknown]
  - Rotator cuff syndrome [Unknown]
  - Uterine leiomyoma [Unknown]
  - Joint dislocation [Unknown]
  - Arthralgia [Unknown]
  - Pustular psoriasis [Unknown]

NARRATIVE: CASE EVENT DATE: 2018
